FAERS Safety Report 8394495-9 (Version None)
Quarter: 2012Q2

REPORT INFORMATION
  Report Type: 
  Country: None (occurrence: None)
  Receive Date: 20120530
  Receipt Date: 20120525
  Transmission Date: 20120825
  Serious: Yes (Other)
  Sender: FDA-Public Use
  Company Number: PHHY2012IE044440

PATIENT
  Age: 28 Year
  Sex: Male

DRUGS (2)
  1. TEGRETOL [Suspect]
     Indication: TEMPORAL LOBE EPILEPSY
     Dosage: 600MG MANE AND 600MG NOCTE
     Route: 048
  2. TEGRETOL [Suspect]
     Dosage: 800 MG, BID
     Route: 048

REACTIONS (5)
  - PETIT MAL EPILEPSY [None]
  - FALL [None]
  - CONTUSION [None]
  - PAIN [None]
  - OBESITY [None]
